FAERS Safety Report 6334974-9 (Version None)
Quarter: 2009Q3

REPORT INFORMATION
  Report Type: 
  Country: None (occurrence: None)
  Receive Date: 20090831
  Receipt Date: 20090825
  Transmission Date: 20100115
  Serious: Yes (Death)
  Sender: FDA-Public Use
  Company Number: IT-ELI_LILLY_AND_COMPANY-IT200908005762

PATIENT
  Age: 74 Year
  Sex: Female

DRUGS (2)
  1. GEMZAR [Suspect]
     Indication: B-CELL LYMPHOMA REFRACTORY
     Dosage: 1200 MG/M2, OTHER ( ON DAY ONE AND EIGHT AS 30 MIN INFUSION ON A 21 DAY CYCLE)
     Route: 042
  2. ELOXATIN [Concomitant]
     Indication: B-CELL LYMPHOMA REFRACTORY
     Dosage: 120 MG/M2, OTHER (ON DAY TWO AS A TWO HOUR INFUSION DILUTED IN 5% DEXTROSE SOLUTION ON A 21 DAY CYCL
     Route: 042

REACTIONS (1)
  - NEUTROPENIC SEPSIS [None]
